FAERS Safety Report 8430654 (Version 4)
Quarter: 2013Q1

REPORT INFORMATION
  Report Type: Report from Study
  Country: US (occurrence: US)
  Receive Date: 20120228
  Receipt Date: 20130322
  Transmission Date: 20140127
  Serious: Yes (Hospitalization)
  Sender: FDA-Public Use
  Company Number: US-JNJFOC-20120210750

PATIENT
  Age: 16 Year
  Sex: Male
  Weight: 46.6 kg

DRUGS (8)
  1. REMICADE [Suspect]
     Indication: INFLAMMATORY BOWEL DISEASE
     Route: 042
     Dates: start: 20110514, end: 20110624
  2. REMICADE [Suspect]
     Indication: INFLAMMATORY BOWEL DISEASE
     Route: 042
     Dates: start: 20091006, end: 20091117
  3. REMICADE [Suspect]
     Indication: INFLAMMATORY BOWEL DISEASE
     Route: 042
     Dates: start: 20050728, end: 20060609
  4. ADALIMUMAB [Concomitant]
     Indication: INFLAMMATORY BOWEL DISEASE
     Dates: start: 20110708
  5. 5-ASA [Concomitant]
     Indication: INFLAMMATORY BOWEL DISEASE
     Dosage: 750 (UNIT UNSPECIFIED)
     Route: 065
  6. FERROUS SULFATE [Concomitant]
     Route: 065
  7. MULTIVITAMINS [Concomitant]
     Route: 065
  8. PROBIOTICS [Concomitant]
     Route: 065

REACTIONS (1)
  - Anal fistula [Recovered/Resolved with Sequelae]
